FAERS Safety Report 5133628-4 (Version None)
Quarter: 2006Q4

REPORT INFORMATION
  Report Type: 
  Country: None (occurrence: None)
  Receive Date: 20061024
  Receipt Date: 20060822
  Transmission Date: 20070319
  Serious: Yes (Other)
  Sender: FDA-Public Use
  Company Number: PHEH2006US10759

PATIENT
  Age: 56 Year
  Sex: Male

DRUGS (3)
  1. ZOMETA [Suspect]
     Indication: MULTIPLE MYELOMA
     Dosage: 4 MG EVERY MONTH
     Dates: start: 20060101, end: 20060701
  2. DECADRON #1 [Concomitant]
     Indication: MULTIPLE MYELOMA
     Dosage: 40 MG, QD 4 DAYS ON/ 4 DAYS OFF
     Dates: start: 20060101
  3. THALIDOMIDE [Concomitant]
     Indication: MULTIPLE MYELOMA
     Dosage: 200 MG, QD
     Dates: start: 20060101

REACTIONS (6)
  - BONE DISORDER [None]
  - BONE EROSION [None]
  - ORAL PAIN [None]
  - ORAL SOFT TISSUE DISORDER [None]
  - OSTEONECROSIS [None]
  - PRIMARY SEQUESTRUM [None]
